FAERS Safety Report 4330446-1 (Version None)
Quarter: 2004Q1

REPORT INFORMATION
  Report Type: 
  Country: None (occurrence: None)
  Receive Date: 20040330
  Receipt Date: 20040316
  Transmission Date: 20041129
  Serious: Yes (Hospitalization)
  Sender: FDA-Public Use
  Company Number: 2004-03-0963

PATIENT
  Age: 94 Year
  Sex: Female

DRUGS (9)
  1. CLARITIN [Suspect]
     Dosage: 10 MG QD ORAL
     Route: 048
     Dates: end: 20031209
  2. SOTALEX TABLETS [Suspect]
     Dosage: 80 MG TID ORAL
     Route: 048
  3. CACIT (CALCIUM CARBONATE) [Concomitant]
  4. CELEBRA (CELEBREX) [Concomitant]
  5. BETASERC [Concomitant]
  6. DAFALGAN [Concomitant]
  7. OGAST [Concomitant]
  8. NAFTAZONE [Concomitant]
  9. GINKGO BILOBA [Concomitant]

REACTIONS (4)
  - DEPRESSED LEVEL OF CONSCIOUSNESS [None]
  - ELECTROCARDIOGRAM QT PROLONGED [None]
  - FALL [None]
  - TRANSIENT ISCHAEMIC ATTACK [None]
